FAERS Safety Report 7678041-0 (Version None)
Quarter: 2011Q3

REPORT INFORMATION
  Report Type: 
  Country: None (occurrence: None)
  Receive Date: 20110811
  Receipt Date: 20110810
  Transmission Date: 20111222
  Serious: Yes (Hospitalization)
  Sender: FDA-Public Use
  Company Number: DE-GLAXOSMITHKLINE-D0072350A

PATIENT
  Sex: Male

DRUGS (1)
  1. HYCAMTIN [Suspect]
     Indication: BRONCHIAL CARCINOMA
     Dosage: 4MGM2 WEEKLY
     Route: 065

REACTIONS (2)
  - VENTRICULAR TACHYCARDIA [None]
  - ANGINA PECTORIS [None]
